FAERS Safety Report 6299875-3 (Version None)
Quarter: 2009Q3

REPORT INFORMATION
  Report Type: 
  Country: None (occurrence: None)
  Receive Date: 20090806
  Receipt Date: 20090727
  Transmission Date: 20100115
  Serious: Yes (Other)
  Sender: FDA-Public Use
  Company Number: PHHY2009CA31665

PATIENT
  Sex: Female

DRUGS (2)
  1. SANDOSTATIN [Suspect]
     Indication: CARCINOID TUMOUR PULMONARY
     Dosage: 50 UG, UNK
     Route: 058
     Dates: start: 20090724
  2. MICARDIS HCT [Concomitant]
     Indication: HYPERTENSION
     Dosage: 80 MG, QD

REACTIONS (5)
  - ABDOMINAL DISCOMFORT [None]
  - ABDOMINAL PAIN [None]
  - DIARRHOEA [None]
  - RECTAL HAEMORRHAGE [None]
  - URINARY INCONTINENCE [None]
